FAERS Safety Report 6411297-0 (Version None)
Quarter: 2009Q4

REPORT INFORMATION
  Report Type: 
  Country: None (occurrence: None)
  Receive Date: 20091023
  Receipt Date: 20091013
  Transmission Date: 20100525
  Serious: Yes (Hospitalization)
  Sender: FDA-Public Use
  Company Number: JP-PFIZER INC-2009287135

PATIENT
  Age: 61 Year

DRUGS (2)
  1. CAMPTOSAR [Suspect]
     Indication: GASTRIC CANCER
     Dosage: 60MG/BODY
     Dates: start: 20090911
  2. RANDA [Suspect]
     Indication: GASTRIC CANCER
     Dosage: 20MG/BODY
     Dates: start: 20090911

REACTIONS (2)
  - ALTERED STATE OF CONSCIOUSNESS [None]
  - PYREXIA [None]
